FAERS Safety Report 18843951 (Version 1)
Quarter: 2021Q1

REPORT INFORMATION
  Report Type: Report from Study
  Country: US (occurrence: US)
  Receive Date: 20210203
  Receipt Date: 20210203
  Transmission Date: 20210419
  Serious: No
  Sender: FDA-Public Use
  Company Number: US-EXELIXIS-CABO-20029082

PATIENT
  Age: 66 Year
  Sex: Male

DRUGS (2)
  1. CABOMETYX [Suspect]
     Active Substance: CABOZANTINIB S-MALATE
     Dosage: 60 MG, QD (AM NO FOOD 2 HRS PRIOR/ 1 HR AFTER)
     Dates: start: 20200401, end: 20200511
  2. CABOMETYX [Suspect]
     Active Substance: CABOZANTINIB S-MALATE
     Indication: RENAL CELL CARCINOMA
     Dosage: 60 MG, QD (AM WITHOUT FOOD)
     Dates: start: 20200317, end: 20200330

REACTIONS (12)
  - Hypoaesthesia [Recovered/Resolved]
  - Constipation [Recovered/Resolved]
  - Muscle spasticity [Recovered/Resolved]
  - Nausea [Unknown]
  - Diarrhoea [Recovering/Resolving]
  - Nasal dryness [Unknown]
  - Blood creatinine abnormal [Unknown]
  - Fatigue [Unknown]
  - Dry skin [Unknown]
  - Epistaxis [Unknown]
  - Vomiting [Unknown]
  - Weight decreased [Recovered/Resolved]

NARRATIVE: CASE EVENT DATE: 202003
